FAERS Safety Report 15826175 (Version 2)
Quarter: 2019Q1

REPORT INFORMATION
  Report Type: Spontaneous
  Country: US (occurrence: US)
  Receive Date: 20190115
  Receipt Date: 20190118
  Transmission Date: 20190417
  Serious: Yes (Other)
  Sender: FDA-Public Use
  Company Number: US-PFIZER INC-2019016105

PATIENT
  Age: 47 Year
  Sex: Female

DRUGS (1)
  1. METHOTREXATE SODIUM. [Suspect]
     Active Substance: METHOTREXATE SODIUM
     Dosage: 0.6 ML, WEEKLY
     Route: 058

REACTIONS (14)
  - Contraindicated product administered [Unknown]
  - Product dose omission [Unknown]
  - Urinary tract infection [Recovered/Resolved]
  - Joint swelling [Unknown]
  - Treatment noncompliance [Unknown]
  - Drug intolerance [Unknown]
  - Fatigue [Unknown]
  - Synovitis [Unknown]
  - Oral disorder [Unknown]
  - Swelling [Unknown]
  - Rheumatoid arthritis [Unknown]
  - Discomfort [Unknown]
  - Arthralgia [Unknown]
  - Alopecia [Unknown]
